FAERS Safety Report 11413311 (Version 1)
Quarter: 2015Q3

REPORT INFORMATION
  Report Type: Spontaneous
  Country: FR (occurrence: FR)
  Receive Date: 20150824
  Receipt Date: 20150824
  Transmission Date: 20151125
  Serious: Yes (Hospitalization)
  Sender: FDA-Public Use
  Company Number: FR-TEVA-587365ISR

PATIENT
  Age: 48 Year
  Sex: Female

DRUGS (4)
  1. CERAZETTE [Concomitant]
     Active Substance: DESOGESTREL
  2. ZOLMITRIPTAN TEVA [Suspect]
     Active Substance: ZOLMITRIPTAN
     Indication: MIGRAINE
     Dosage: OCCASIONNALLY
  3. DOLIPRANE [Concomitant]
     Active Substance: ACETAMINOPHEN
  4. ZOLMITRIPTAN TEVA [Suspect]
     Active Substance: ZOLMITRIPTAN
     Dosage: 1 DOSAGE FORMS DAILY;
     Dates: start: 20140907, end: 20140907

REACTIONS (1)
  - Acute coronary syndrome [Recovered/Resolved]

NARRATIVE: CASE EVENT DATE: 20140907
